FAERS Safety Report 10408692 (Version 1)
Quarter: 2014Q1

REPORT INFORMATION
  Report Type: Spontaneous
  Country: US (occurrence: None)
  Receive Date: 20130225
  Receipt Date: 20130225
  Transmission Date: 20141002
  Serious: Yes (Hospitalization)
  Sender: FDA-Public Use
  Company Number: 2012000240S

PATIENT
  Age: 56 Year
  Sex: 0

DRUGS (2)
  1. KEFLEX [Suspect]
     Indication: CELLULITIS
     Dosage: UNK
  2. GILENYA (FINGOLIMOD HYDROCHLORIDE) [Concomitant]

REACTIONS (1)
  - Drug ineffective [None]
